FAERS Safety Report 7678575-9 (Version None)
Quarter: 2011Q3

REPORT INFORMATION
  Report Type: 
  Country: None (occurrence: None)
  Receive Date: 20110811
  Receipt Date: 20110803
  Transmission Date: 20111222
  Serious: Yes (Hospitalization, Other)
  Sender: FDA-Public Use
  Company Number: PHHY2011IR70915

PATIENT
  Age: 24 Year
  Sex: Female

DRUGS (1)
  1. WARFARIN SODIUM [Suspect]
     Indication: DEEP VEIN THROMBOSIS

REACTIONS (5)
  - PAIN [None]
  - INTESTINAL ISCHAEMIA [None]
  - SKIN NECROSIS [None]
  - SKIN LESION [None]
  - BLISTER [None]
